FAERS Safety Report 9393606 (Version 4)
Quarter: 2013Q4

REPORT INFORMATION
  Report Type: Spontaneous
  Country: JP (occurrence: JP)
  Receive Date: 20130710
  Receipt Date: 20131028
  Transmission Date: 20140711
  Serious: Yes (Hospitalization, Other)
  Sender: FDA-Public Use
  Company Number: JP-009507513-1304JPN008897

PATIENT
  Age: 78 Year
  Sex: Female

DRUGS (18)
  1. ZETIA TABLETS 10MG [Suspect]
     Indication: HYPERCHOLESTEROLAEMIA
     Dosage: 10 MG, QD
     Route: 048
     Dates: start: 20130131, end: 20130413
  2. LONASEN [Suspect]
     Dosage: 2 MG, BID
     Route: 048
     Dates: end: 20130410
  3. AKINETON TABLETS [Suspect]
     Dosage: DAILY DOSE UNKNOWN, FORMULATION : POR
     Route: 048
     Dates: end: 20130410
  4. ABILIFY [Suspect]
     Dosage: 3 MG, QD
     Route: 048
     Dates: end: 20130410
  5. DIOVAN [Concomitant]
     Dosage: 80 MG, QD, DIVIDED DOSE FREQUENCY UNKNOWN
     Route: 048
     Dates: start: 20120905, end: 20130413
  6. NATRIX [Concomitant]
     Dosage: 1 MG, QD,  DIVIDED DOSE FREQUENCY UNKNOWN
     Route: 048
     Dates: start: 20120905, end: 20130413
  7. GASLON N [Concomitant]
     Dosage: 4 MG, 2T A DAY, DIVIDED DOSE FREQUENCY UNKNOWN
     Route: 048
     Dates: start: 20121024, end: 20130413
  8. INFREE S [Concomitant]
     Dosage: 200 MG, BID
     Route: 048
     Dates: end: 20130413
  9. MERISLON [Concomitant]
     Dosage: 12 MG, 2T A DAY, DIVIDED DOSE FREQUENCY UNKNOWN
     Route: 048
  10. MAINTATE [Concomitant]
     Dosage: 2.5 MG, QD, DIVIDED DOSE FREQUENCY UNKNOWN
     Route: 048
     Dates: start: 20120905, end: 20130413
  11. TASMOLIN (BIPERIDEN HYDROCHLORIDE) [Concomitant]
     Dosage: 0.5 MG, BID, FORMULATION: POR
     Route: 048
     Dates: end: 20130410
  12. RESMIT [Concomitant]
     Dosage: UNK, TID, DAILY DOSE UNKNOWN
     Route: 048
     Dates: end: 20130410
  13. UNDEPRE [Concomitant]
     Dosage: 50 MG, QD
     Route: 048
     Dates: end: 20130410
  14. FLUNITRAZEPAM [Concomitant]
     Dosage: 2 MG, QD
     Route: 048
     Dates: end: 20130410
  15. HALCION [Concomitant]
     Dosage: 0.25 MG, QD
     Route: 048
     Dates: end: 20130410
  16. LENDORMIN [Concomitant]
     Dosage: 1 DF, QD, DIVIDED DOSE FREQUENCY UNKNOWN
     Route: 048
     Dates: end: 20130410
  17. PRORENAL [Concomitant]
     Dosage: 5 MG, TAKEN IN 3 TIMES
     Route: 048
     Dates: end: 20130410
  18. BONALON [Concomitant]
     Dosage: 35 MG WEEKLY
     Route: 048
     Dates: start: 20080315, end: 20130403

REACTIONS (2)
  - Altered state of consciousness [Recovered/Resolved]
  - Rhabdomyolysis [Recovered/Resolved with Sequelae]
